FAERS Safety Report 9338146 (Version 1)
Quarter: 2013Q2

REPORT INFORMATION
  Report Type: Spontaneous
  Country: US (occurrence: None)
  Receive Date: 20130605
  Receipt Date: 20130605
  Transmission Date: 20140414
  Serious: Yes (Other)
  Sender: FDA-Public Use
  Company Number: None

PATIENT
  Age: 48 Year
  Sex: Female
  Weight: 78.02 kg

DRUGS (1)
  1. AMMONIUM LACTATE [Suspect]
     Indication: ACTINIC KERATOSIS
     Dosage: APPLY TO AFFECTED DAILY CUTANEOUS
     Route: 003
     Dates: start: 20130601, end: 20130603

REACTIONS (14)
  - Hyperhidrosis [None]
  - Asthenia [None]
  - Dyspepsia [None]
  - Dizziness [None]
  - Local swelling [None]
  - Local swelling [None]
  - Nausea [None]
  - Syncope [None]
  - Diarrhoea haemorrhagic [None]
  - Vomiting [None]
  - Pulse pressure decreased [None]
  - Heart rate increased [None]
  - Confusional state [None]
  - Dyspnoea [None]
